FAERS Safety Report 4900117-9 (Version None)
Quarter: 2006Q1

REPORT INFORMATION
  Report Type: 
  Country: None (occurrence: None)
  Receive Date: 20060201
  Receipt Date: 20060118
  Transmission Date: 20060701
  Serious: Yes (Hospitalization, Other)
  Sender: FDA-Public Use
  Company Number: US200511000812

PATIENT
  Age: 65 Year
  Sex: Male

DRUGS (3)
  1. HUMATROPE [Suspect]
     Indication: HYPOPITUITARISM
     Dosage: 0.3 MG DAILY (1/D)
     Dates: start: 19990101
  2. HUMATROPEN (HUMATROPEN) [Concomitant]
  3. LORTAB [Concomitant]

REACTIONS (4)
  - ARTHRITIS INFECTIVE [None]
  - CHONDROPATHY [None]
  - DEVICE FAILURE [None]
  - JOINT DISLOCATION [None]
